FAERS Safety Report 6895060-2 (Version None)
Quarter: 2010Q3

REPORT INFORMATION
  Report Type: 
  Country: None (occurrence: None)
  Receive Date: 20100727
  Receipt Date: 20100715
  Transmission Date: 20110219
  Serious: Yes (Death)
  Sender: FDA-Public Use
  Company Number: DSM-2010-01053

PATIENT
  Age: 58 Year
  Sex: Male

DRUGS (4)
  1. SEVIKAR (OLMESARTAN MEDOXOMIL, AMLODIPINE BESILATE) (TABLET) (OLMESART [Suspect]
     Indication: HYPERTENSION
     Dosage: 40/5 MG, ORAL
     Route: 048
     Dates: start: 20090701
  2. OMEPRAZOL (OMEPRAZOLE) (40 MILLIGRAM) (OMEPRAZOLE) [Concomitant]
  3. CARVEDILOL (CARVEDILOL) (6.25 MILLIGRAM) (CARVEDILOL) [Concomitant]
  4. KALINOR RET (POTASSIUM CHLORIDE) (POTASSIUM CHLORIDE) [Concomitant]

REACTIONS (1)
  - SUDDEN CARDIAC DEATH [None]
